FAERS Safety Report 19609265 (Version 1)
Quarter: 2021Q3

REPORT INFORMATION
  Report Type: Spontaneous
  Country: US (occurrence: US)
  Receive Date: 20210723
  Receipt Date: 20210723
  Transmission Date: 20211014
  Serious: No
  Sender: FDA-Public Use
  Company Number: None

PATIENT
  Age: 64 Year
  Sex: Male
  Weight: 47 kg

DRUGS (1)
  1. CARBOPLATIN (CARBOPLATIN 600MG/VIL INJ) [Suspect]
     Active Substance: CARBOPLATIN
     Indication: METASTATIC SQUAMOUS CELL CARCINOMA
     Route: 042
     Dates: start: 20210603, end: 20210603

REACTIONS (3)
  - Hypophagia [None]
  - Dehydration [None]
  - Hyponatraemia [None]

NARRATIVE: CASE EVENT DATE: 20210623
